FAERS Safety Report 18500879 (Version 2)
Quarter: 2020Q4

REPORT INFORMATION
  Report Type: Spontaneous
  Country: CN (occurrence: CN)
  Receive Date: 20201113
  Receipt Date: 20201128
  Transmission Date: 20210114
  Serious: Yes (Other)
  Sender: FDA-Public Use
  Company Number: NVSC2020CN298694

PATIENT
  Age: 24 Year
  Sex: Male

DRUGS (5)
  1. TRILEPTAL [Suspect]
     Active Substance: OXCARBAZEPINE
     Dosage: 300 MG, BID 1 TABLET IN MORNING AND 1 IN EVENING
     Route: 048
     Dates: start: 2008
  2. TRILEPTAL [Suspect]
     Active Substance: OXCARBAZEPINE
     Dosage: UNK FCT
     Route: 065
     Dates: start: 2017, end: 202006
  3. TRILEPTAL [Suspect]
     Active Substance: OXCARBAZEPINE
     Indication: EPILEPSY
     Dosage: 300 MG, QD  ? TABLET
     Route: 048
     Dates: start: 2005
  4. TRILEPTAL [Suspect]
     Active Substance: OXCARBAZEPINE
     Dosage: 300 MG ? TABLET
     Route: 048
  5. TRILEPTAL [Suspect]
     Active Substance: OXCARBAZEPINE
     Dosage: 2 DF, BID (FCT 300 MG)
     Route: 048

REACTIONS (14)
  - Intentional product use issue [Unknown]
  - Seizure [Unknown]
  - Epilepsy [Unknown]
  - Somnolence [Recovered/Resolved]
  - Pruritus [Unknown]
  - Fatigue [Recovered/Resolved]
  - Nausea [Recovered/Resolved]
  - Dizziness [Unknown]
  - Discomfort [Unknown]
  - Vision blurred [Unknown]
  - Vitreous floaters [Unknown]
  - Medication error [Unknown]
  - Headache [Recovered/Resolved]
  - Drug ineffective [Unknown]

NARRATIVE: CASE EVENT DATE: 20201104
